FAERS Safety Report 19684739 (Version 1)
Quarter: 2021Q3

REPORT INFORMATION
  Report Type: Spontaneous
  Country: US (occurrence: US)
  Receive Date: 20210810
  Receipt Date: 20210810
  Transmission Date: 20211014
  Serious: Yes (Hospitalization)
  Sender: FDA-Public Use
  Company Number: None

PATIENT
  Age: 58 Year
  Sex: Male

DRUGS (1)
  1. ERIVEDGE [Suspect]
     Active Substance: VISMODEGIB
     Indication: BASAL CELL CARCINOMA
     Route: 048
     Dates: start: 20210122

REACTIONS (5)
  - Alopecia [None]
  - Muscle spasms [None]
  - Constipation [None]
  - Diarrhoea [None]
  - Cellulitis [None]

NARRATIVE: CASE EVENT DATE: 20210709
